FAERS Safety Report 9734829 (Version 2)
Quarter: 2013Q4

REPORT INFORMATION
  Report Type: Spontaneous
  Country: BR (occurrence: BR)
  Receive Date: 20131206
  Receipt Date: 20131206
  Transmission Date: 20140711
  Serious: Yes (Other)
  Sender: FDA-Public Use
  Company Number: BR-ROCHE-1298257

PATIENT
  Age: 70 Year
  Sex: Male
  Weight: 83 kg

DRUGS (2)
  1. ZELBORAF [Suspect]
     Indication: METASTATIC MALIGNANT MELANOMA
     Route: 048
     Dates: start: 20130516
  2. CORUS H [Concomitant]
     Indication: HYPERTENSION
     Route: 048

REACTIONS (7)
  - Squamous cell carcinoma [Recovered/Resolved]
  - Melanocytic naevus [Unknown]
  - Malignant melanoma in situ [Unknown]
  - Photosensitivity reaction [Not Recovered/Not Resolved]
  - Hyperkeratosis [Unknown]
  - Alopecia [Unknown]
  - Skin lesion [Unknown]
